FAERS Safety Report 12508625 (Version 1)
Quarter: 2016Q2

REPORT INFORMATION
  Report Type: Spontaneous
  Country: US (occurrence: US)
  Receive Date: 20160629
  Receipt Date: 20160629
  Transmission Date: 20160815
  Serious: Yes (Death)
  Sender: FDA-Public Use
  Company Number: US-ASTELLAS-2016US024969

PATIENT
  Age: 86 Year

DRUGS (1)
  1. TARCEVA [Suspect]
     Active Substance: ERLOTINIB HYDROCHLORIDE
     Indication: PANCREATIC CARCINOMA
     Dosage: 100 MG, ONCE DAILY 1 HOUR BEFORE OR 2 HOURS AFTER MEALS
     Route: 048
     Dates: start: 20160524, end: 20160621

REACTIONS (1)
  - Death [Fatal]

NARRATIVE: CASE EVENT DATE: 20160621
